FAERS Safety Report 25793503 (Version 3)
Quarter: 2025Q4

REPORT INFORMATION
  Report Type: Report from Study
  Country: US (occurrence: US)
  Receive Date: 20250911
  Receipt Date: 20251024
  Transmission Date: 20260118
  Serious: Yes (Other)
  Sender: ABBVIE
  Company Number: US-ABBVIE-6437190

PATIENT
  Age: 53 Year
  Sex: Male

DRUGS (1)
  1. SKYRIZI [Suspect]
     Active Substance: RISANKIZUMAB-RZAA
     Indication: Crohn^s disease
     Dosage: DISCONTINUED IN 2025
     Route: 042
     Dates: start: 20250627

REACTIONS (6)
  - Small intestinal resection [Unknown]
  - Hepatic enzyme increased [Unknown]
  - Malabsorption [Unknown]
  - Gastrointestinal stenosis [Unknown]
  - Abdominal pain [Recovering/Resolving]
  - Pain [Unknown]

NARRATIVE: CASE EVENT DATE: 20250101
